FAERS Safety Report 20081955 (Version 1)
Quarter: 2021Q4

REPORT INFORMATION
  Report Type: Spontaneous
  Country: DE (occurrence: DE)
  Receive Date: 20211117
  Receipt Date: 20211117
  Transmission Date: 20220303
  Serious: Yes (Hospitalization)
  Sender: FDA-Public Use
  Company Number: DE-ADRED-06011-02

PATIENT
  Age: 43 Year
  Sex: Male

DRUGS (2)
  1. FINGOLIMOD [Suspect]
     Active Substance: FINGOLIMOD
     Indication: Product used for unknown indication
     Dosage: 0.5 MILLIGRAM, QD
     Route: 048
  2. VIGANTOL                           /00318501/ [Concomitant]
     Dosage: 1000 INTERNATIONAL UNIT
     Route: 048

REACTIONS (4)
  - Polyuria [Unknown]
  - Pyrexia [Unknown]
  - Uhthoff^s phenomenon [Unknown]
  - Dysuria [Unknown]
